FAERS Safety Report 25721573 (Version 1)
Quarter: 2025Q3

REPORT INFORMATION
  Report Type: Spontaneous
  Country: EU (occurrence: EU)
  Receive Date: 20250825
  Receipt Date: 20250825
  Transmission Date: 20251020
  Serious: Yes (Other)
  Sender: AUROBINDO
  Company Number: EU-BIOGARAN-B21001547

PATIENT
  Age: 78 Year
  Sex: Male

DRUGS (4)
  1. AZITHROMYCIN ANHYDROUS [Suspect]
     Active Substance: AZITHROMYCIN ANHYDROUS
     Indication: Off label use
     Route: 065
  2. AZITHROMYCIN ANHYDROUS [Suspect]
     Active Substance: AZITHROMYCIN ANHYDROUS
     Indication: Babesiosis
     Dosage: 500 MILLIGRAM, ONCE A DAY
     Route: 065
  3. ATOVAQUONE [Suspect]
     Active Substance: ATOVAQUONE
     Indication: Off label use
     Route: 065
  4. ATOVAQUONE [Suspect]
     Active Substance: ATOVAQUONE
     Indication: Babesiosis
     Dosage: 1500 MILLIGRAM, ONCE A DAY
     Route: 065

REACTIONS (4)
  - Intentional product use issue [Recovering/Resolving]
  - Off label use [Recovering/Resolving]
  - Anaemia [Recovering/Resolving]
  - Drug effective for unapproved indication [Recovering/Resolving]
